FAERS Safety Report 8506616-5 (Version None)
Quarter: 2012Q3

REPORT INFORMATION
  Report Type: 
  Country: None (occurrence: None)
  Receive Date: 20120706
  Receipt Date: 20120706
  Transmission Date: 20120928
  Serious: No
  Sender: FDA-Public Use
  Company Number: None

PATIENT
  Age: 51 Year
  Sex: Male
  Weight: 107.5025 kg

DRUGS (1)
  1. AMBIEN [Suspect]
     Indication: INSOMNIA
     Dosage: 10 MG AT NS, PO
     Route: 048

REACTIONS (5)
  - AGITATION [None]
  - DELUSION [None]
  - CONFUSIONAL STATE [None]
  - PARANOIA [None]
  - SOMNAMBULISM [None]
